FAERS Safety Report 12193375 (Version 2)
Quarter: 2016Q3

REPORT INFORMATION
  Report Type: Spontaneous
  Country: US (occurrence: US)
  Receive Date: 20160320
  Receipt Date: 20160812
  Transmission Date: 20161109
  Serious: No
  Sender: FDA-Public Use
  Company Number: US-ASTRAZENECA-2016SE21833

PATIENT
  Age: 16094 Day
  Sex: Female
  Weight: 65.3 kg

DRUGS (9)
  1. GLIMEPIRIDE. [Concomitant]
     Active Substance: GLIMEPIRIDE
     Indication: TYPE 2 DIABETES MELLITUS
  2. ASPIRIN. [Concomitant]
     Active Substance: ASPIRIN
  3. PRAVASTATIN. [Concomitant]
     Active Substance: PRAVASTATIN
  4. FOLIC ACID. [Concomitant]
     Active Substance: FOLIC ACID
  5. BYDUREON [Suspect]
     Active Substance: EXENATIDE
     Indication: DIABETES MELLITUS
     Route: 058
     Dates: start: 20131004
  6. LANTUS [Concomitant]
     Active Substance: INSULIN GLARGINE
  7. FENOFIBRATE. [Concomitant]
     Active Substance: FENOFIBRATE
     Indication: TYPE 2 DIABETES MELLITUS
  8. METFORMIN [Concomitant]
     Active Substance: METFORMIN HYDROCHLORIDE
     Indication: TYPE 2 DIABETES MELLITUS
     Dosage: 2500.0MG UNKNOWN
     Route: 048
     Dates: start: 20080423
  9. LISINOPRIL. [Concomitant]
     Active Substance: LISINOPRIL

REACTIONS (4)
  - Injection site nodule [Unknown]
  - Stomach mass [Recovered/Resolved]
  - Underdose [Unknown]
  - Product quality issue [Unknown]

NARRATIVE: CASE EVENT DATE: 20131004
